FAERS Safety Report 19713607 (Version 1)
Quarter: 2021Q3

REPORT INFORMATION
  Report Type: Spontaneous
  Country: CH (occurrence: CH)
  Receive Date: 20210817
  Receipt Date: 20210817
  Transmission Date: 20211014
  Serious: Yes (Death)
  Sender: FDA-Public Use
  Company Number: CH-BAXTER-2021BAX024497

PATIENT
  Age: 71 Year
  Sex: Female

DRUGS (4)
  1. ENDOXAN 1 G. TROCKENSUBSTANZ ZUR INTRAVENOSEN INFUSION [Suspect]
     Active Substance: CYCLOPHOSPHAMIDE
     Indication: B-CELL LYMPHOMA
     Route: 065
  2. HY?DROXYDOXORUBICIN [Suspect]
     Active Substance: HYDROXYDOXORUBICIN
     Indication: B-CELL LYMPHOMA
     Route: 065
  3. RITUXIMAB. [Suspect]
     Active Substance: RITUXIMAB
     Indication: B-CELL LYMPHOMA
     Route: 065
  4. PREDNISON [Suspect]
     Active Substance: PREDNISONE
     Indication: B-CELL LYMPHOMA
     Route: 065

REACTIONS (2)
  - Death [Fatal]
  - Drug ineffective [Unknown]
